FAERS Safety Report 10195562 (Version 1)
Quarter: 2014Q2

REPORT INFORMATION
  Report Type: Spontaneous
  Country: FR (occurrence: FR)
  Receive Date: 20140527
  Receipt Date: 20140527
  Transmission Date: 20141212
  Serious: Yes (Death, Other)
  Sender: FDA-Public Use
  Company Number: PHHY2014FR062900

PATIENT
  Age: 60 Year
  Sex: Female

DRUGS (8)
  1. QUETIAPINE [Suspect]
  2. ZOPICLONE [Suspect]
  3. BROMAZEPAM [Suspect]
  4. OXAZEPAM [Suspect]
  5. ALPRAZOLAM [Suspect]
  6. LORAZEPAM [Suspect]
  7. LORMETAZEPAM [Suspect]
  8. CYAMEMAZINE [Suspect]

REACTIONS (3)
  - Intentional overdose [Fatal]
  - Completed suicide [Fatal]
  - Toxicity to various agents [Unknown]
